FAERS Safety Report 5373336-8 (Version None)
Quarter: 2007Q2

REPORT INFORMATION
  Report Type: 
  Country: None (occurrence: None)
  Receive Date: 20070628
  Receipt Date: 20070626
  Transmission Date: 20071010
  Serious: Yes (Other)
  Sender: FDA-Public Use
  Company Number: US-BRISTOL-MYERS SQUIBB COMPANY-13793609

PATIENT
  Age: 58 Year
  Sex: Female

DRUGS (10)
  1. ABATACEPT [Suspect]
     Indication: RHEUMATOID ARTHRITIS
     Route: 042
     Dates: start: 20040505
  2. PREDNISONE TAB [Concomitant]
     Dates: start: 20060511
  3. LISINOPRIL [Concomitant]
     Dates: start: 20070201
  4. XANAX [Concomitant]
     Dates: start: 20050309
  5. PREVACID [Concomitant]
     Dates: start: 20050127
  6. ASPIRIN [Concomitant]
     Dates: start: 20050121
  7. CALCIUM CHLORIDE [Concomitant]
     Dates: start: 20000101
  8. THIAMINE HCL [Concomitant]
     Dates: start: 20030101
  9. OXYCONTIN [Concomitant]
     Dates: start: 19990101
  10. CELEBREX [Concomitant]
     Dates: start: 20051118

REACTIONS (1)
  - BOWEN'S DISEASE [None]
